FAERS Safety Report 6153509-7 (Version None)
Quarter: 2009Q2

REPORT INFORMATION
  Report Type: 
  Country: None (occurrence: None)
  Receive Date: 20090413
  Receipt Date: 20090403
  Transmission Date: 20091009
  Serious: Yes (Hospitalization)
  Sender: FDA-Public Use
  Company Number: PHHY2009DE13174

PATIENT
  Age: 66 Year
  Sex: Female
  Weight: 70 kg

DRUGS (16)
  1. SANDIMMUNE [Suspect]
     Indication: IMMUNOSUPPRESSION
     Dosage: 225-0-200 MG
     Route: 048
     Dates: start: 20081101
  2. SANDIMMUNE [Suspect]
     Dosage: 150-0-125 MG
     Route: 048
     Dates: start: 20090209
  3. CELLCEPT [Suspect]
     Indication: IMMUNOSUPPRESSION
     Dosage: 500 MG, QID
     Route: 048
     Dates: start: 20081101, end: 20090209
  4. CELLCEPT [Suspect]
     Dosage: 1500 MG/DAY
     Route: 048
     Dates: start: 20090217
  5. COTRIM [Suspect]
     Indication: PROPHYLAXIS URINARY TRACT INFECTION
     Dosage: UNK
     Route: 048
     Dates: start: 20081223, end: 20090206
  6. DELIX [Suspect]
     Indication: HYPERTENSION
     Dosage: 5 MG, BID
     Route: 048
     Dates: start: 20081223, end: 20090206
  7. NOVALGIN [Suspect]
     Indication: PAIN
     Dosage: 30 MG, QD
     Dates: start: 20081101, end: 20090206
  8. VALCYTE [Suspect]
     Indication: OPPORTUNISTIC INFECTION PROPHYLAXIS
     Dosage: UNK
     Route: 048
     Dates: start: 20081101, end: 20090206
  9. BISOPROLOL FUMARATE [Concomitant]
     Indication: TACHYCARDIA
     Dosage: 2.5 MG, QD
     Route: 048
     Dates: start: 20081223
  10. CALCIMAGON-D3 [Concomitant]
     Indication: RENAL OSTEODYSTROPHY
     Dosage: 1 MG, BID
     Route: 048
     Dates: start: 20081101
  11. FALITHROM [Concomitant]
     Indication: VENOUS THROMBOSIS
     Dosage: 3 MG, QD
     Route: 048
     Dates: start: 20090130, end: 20090207
  12. LOCOL [Concomitant]
     Indication: CARDIOVASCULAR EVENT PROPHYLAXIS
     Dosage: 40 MG, QD
     Route: 048
     Dates: start: 20081101
  13. METOCLOPRAMIDE [Concomitant]
     Dosage: 20 MG, TID
     Route: 048
     Dates: start: 20081201, end: 20090213
  14. PANTOZOL [Concomitant]
     Indication: PROPHYLAXIS AGAINST GASTROINTESTINAL ULCER
     Dosage: 40 MG, QD
     Route: 048
     Dates: start: 20081101
  15. PREDNISOLONE [Concomitant]
     Indication: IMMUNOSUPPRESSION
     Dosage: 5 MG, QD
     Route: 048
     Dates: start: 20081101
  16. TORASEMIDE [Concomitant]
     Indication: HYPERTENSION
     Dosage: 10 MG, BID
     Route: 048
     Dates: start: 20081101

REACTIONS (12)
  - COUGH [None]
  - ERYTHROPENIA [None]
  - FOCAL GLOMERULOSCLEROSIS [None]
  - IMMUNOSUPPRESSANT DRUG LEVEL INCREASED [None]
  - LEUKOPENIA [None]
  - NASOPHARYNGITIS [None]
  - OROPHARYNGEAL PAIN [None]
  - PANCYTOPENIA [None]
  - RENAL IMPAIRMENT [None]
  - RENAL TUBULAR ATROPHY [None]
  - RENAL TUBULAR DISORDER [None]
  - URINARY TRACT INFECTION PSEUDOMONAL [None]
